FAERS Safety Report 5700217-X (Version None)
Quarter: 2008Q2

REPORT INFORMATION
  Report Type: 
  Country: None (occurrence: None)
  Receive Date: 20080409
  Receipt Date: 20080328
  Transmission Date: 20081010
  Serious: No
  Sender: FDA-Public Use
  Company Number: US-JNJFOC-20080400227

PATIENT
  Sex: Male

DRUGS (2)
  1. INVEGA [Suspect]
     Indication: PSYCHOTIC DISORDER
     Route: 048
     Dates: start: 20080213, end: 20080215
  2. LEXAPRO [Concomitant]
     Indication: UNEVALUABLE EVENT

REACTIONS (2)
  - DRUG ADMINISTRATION ERROR [None]
  - EXTRAPYRAMIDAL DISORDER [None]
